FAERS Safety Report 20392930 (Version 1)
Quarter: 2022Q1

REPORT INFORMATION
  Report Type: Spontaneous
  Country: US (occurrence: US)
  Receive Date: 20220128
  Receipt Date: 20220128
  Transmission Date: 20220424
  Serious: No
  Sender: FDA-Public Use
  Company Number: US-BRISTOL-MYERS SQUIBB COMPANY-BMS-2022-008135

PATIENT
  Age: 20 Year
  Sex: Male

DRUGS (1)
  1. HYDROXYUREA [Suspect]
     Active Substance: HYDROXYUREA
     Indication: Acute myeloid leukaemia refractory
     Dosage: UNK
     Route: 065
     Dates: start: 20220105, end: 20220110

REACTIONS (1)
  - Intentional product use issue [Unknown]

NARRATIVE: CASE EVENT DATE: 20220105
